FAERS Safety Report 6785907-2 (Version None)
Quarter: 2010Q2

REPORT INFORMATION
  Report Type: 
  Country: None (occurrence: None)
  Receive Date: 20100623
  Receipt Date: 20100610
  Transmission Date: 20101027
  Serious: No
  Sender: FDA-Public Use
  Company Number: US-B.I. PHARMACEUTICALS,INC./RIDGEFIELD-2010-BP-06660BP

PATIENT
  Sex: Female

DRUGS (2)
  1. ZANTAC 75 [Suspect]
     Indication: ABDOMINAL DISCOMFORT
     Dosage: 150 MG
     Route: 048
     Dates: start: 20100426, end: 20100610
  2. PREDNISONE [Concomitant]

REACTIONS (2)
  - HYPERTENSION [None]
  - TACHYCARDIA [None]
